FAERS Safety Report 6246144-3 (Version None)
Quarter: 2009Q2

REPORT INFORMATION
  Report Type: 
  Country: None (occurrence: None)
  Receive Date: 20090626
  Receipt Date: 20090423
  Transmission Date: 20091009
  Serious: No
  Sender: FDA-Public Use
  Company Number: A0779753A

PATIENT
  Age: 62 Year
  Sex: Female
  Weight: 49.1 kg

DRUGS (2)
  1. SUMATRIPTAN SUCCINATE [Suspect]
     Route: 048
  2. NO CONCURRENT MEDICATIONS [Concomitant]

REACTIONS (3)
  - DRUG EFFECT DECREASED [None]
  - PRODUCT QUALITY ISSUE [None]
  - THERAPEUTIC RESPONSE DELAYED [None]
